FAERS Safety Report 4359194-9 (Version None)
Quarter: 2004Q2

REPORT INFORMATION
  Report Type: 
  Country: None (occurrence: None)
  Receive Date: 20040512
  Receipt Date: 20040505
  Transmission Date: 20050107
  Serious: Yes (Other)
  Sender: FDA-Public Use
  Company Number: 2004211745FR

PATIENT
  Age: 70 Year
  Sex: Male

DRUGS (1)
  1. ZYVOX [Suspect]
     Indication: STAPHYLOCOCCAL INFECTION
     Dosage: 600 MG, BID
     Dates: start: 20030811, end: 20030918

REACTIONS (4)
  - ABDOMINAL PAIN UPPER [None]
  - ANAEMIA [None]
  - CHEILITIS [None]
  - PARAESTHESIA [None]
